FAERS Safety Report 4832368-6 (Version None)
Quarter: 2005Q4

REPORT INFORMATION
  Report Type: 
  Country: None (occurrence: None)
  Receive Date: 20051116
  Receipt Date: 20051116
  Transmission Date: 20060501
  Serious: No
  Sender: FDA-Public Use
  Company Number: None

PATIENT
  Age: 44 Year
  Sex: Female
  Weight: 47 kg

DRUGS (1)
  1. ISONIAZID [Suspect]
     Dosage: PO
     Route: 048
     Dates: start: 20050110, end: 20050120

REACTIONS (3)
  - HEPATITIS [None]
  - PANCREATITIS [None]
  - RENAL DISORDER [None]
